FAERS Safety Report 4924041-0 (Version None)
Quarter: 2006Q1

REPORT INFORMATION
  Report Type: 
  Country: None (occurrence: None)
  Receive Date: 20060227
  Receipt Date: 20060215
  Transmission Date: 20060701
  Serious: Yes (Life-Threatening)
  Sender: FDA-Public Use
  Company Number: DE-BRISTOL-MYERS SQUIBB COMPANY-13293378

PATIENT
  Age: 77 Year
  Sex: Male

DRUGS (4)
  1. ERBITUX [Suspect]
     Indication: RECTAL CANCER
     Route: 042
     Dates: start: 20051207, end: 20051207
  2. FLUOROURACIL [Concomitant]
     Indication: RECTAL CANCER
     Dates: start: 20050401
  3. FOLIC ACID [Concomitant]
     Indication: RECTAL CANCER
     Dates: start: 20050401, end: 20050901
  4. IRINOTECAN HCL [Concomitant]
     Indication: RECTAL CANCER
     Dates: start: 20051001

REACTIONS (2)
  - BLOOD PRESSURE IMMEASURABLE [None]
  - CIRCULATORY COLLAPSE [None]
